FAERS Safety Report 4412110-3 (Version None)
Quarter: 2004Q3

REPORT INFORMATION
  Report Type: 
  Country: None (occurrence: None)
  Receive Date: 20040730
  Receipt Date: 20040721
  Transmission Date: 20050211
  Serious: Yes (Hospitalization)
  Sender: FDA-Public Use
  Company Number: FR-GLAXOSMITHKLINE-B0339912A

PATIENT
  Age: 62 Year
  Sex: Male

DRUGS (5)
  1. ZINNAT INJECTABLE [Suspect]
     Route: 042
  2. XYLOCAINE [Suspect]
     Route: 065
  3. HYPNOVEL [Suspect]
     Route: 065
  4. SUFENTA [Suspect]
     Route: 065
  5. DIPRIVAN [Suspect]
     Route: 065

REACTIONS (1)
  - BRONCHOSPASM [None]
